FAERS Safety Report 5689837-9 (Version None)
Quarter: 2008Q1

REPORT INFORMATION
  Report Type: 
  Country: None (occurrence: None)
  Receive Date: 20080331
  Receipt Date: 20080331
  Transmission Date: 20080703
  Serious: No
  Sender: FDA-Public Use
  Company Number: None

PATIENT
  Age: 15 Year
  Sex: Female
  Weight: 68.0396 kg

DRUGS (3)
  1. SINGULAIR [Suspect]
     Indication: RESPIRATORY DISORDER
     Dosage: 1X DAY
     Dates: start: 20071212, end: 20080206
  2. SINGULAIR [Suspect]
     Indication: ASTHMA
     Dosage: 1X DAY  OFF AND ON ^SEASONAL^
     Dates: start: 20050101, end: 20080306
  3. SINGULAIR [Suspect]
     Indication: MULTIPLE ALLERGIES
     Dosage: 1X DAY  OFF AND ON ^SEASONAL^
     Dates: start: 20050101, end: 20080306

REACTIONS (2)
  - DEPRESSION [None]
  - SUICIDAL IDEATION [None]
